FAERS Safety Report 13623887 (Version 1)
Quarter: 2017Q2

REPORT INFORMATION
  Report Type: Spontaneous
  Country: US (occurrence: US)
  Receive Date: 20170607
  Receipt Date: 20170607
  Transmission Date: 20170830
  Serious: No
  Sender: FDA-Public Use
  Company Number: US-GLAXOSMITHKLINE-US2017084872

PATIENT
  Age: 90 Year
  Sex: Male

DRUGS (1)
  1. VOLTAREN [Suspect]
     Active Substance: DICLOFENAC SODIUM
     Indication: SKIN ULCER
     Dosage: UNK
     Dates: start: 2016, end: 20170601

REACTIONS (4)
  - Drug effective for unapproved indication [Unknown]
  - Skin disorder [Not Recovered/Not Resolved]
  - Product use in unapproved indication [Unknown]
  - Prescription drug used without a prescription [Unknown]
